FAERS Safety Report 12411680 (Version 1)
Quarter: 2016Q2

REPORT INFORMATION
  Report Type: Spontaneous
  Country: US (occurrence: None)
  Receive Date: 20160526
  Receipt Date: 20160526
  Transmission Date: 20160815
  Serious: Yes (Hospitalization)
  Sender: FDA-Public Use
  Company Number: None

PATIENT
  Age: 68 Year
  Sex: Female
  Weight: 63.41 kg

DRUGS (2)
  1. IBRANCE [Suspect]
     Active Substance: PALBOCICLIB
     Indication: METASTASES TO BONE
     Route: 048
     Dates: start: 20150805, end: 20160125
  2. IBRANCE [Suspect]
     Active Substance: PALBOCICLIB
     Indication: BREAST CANCER
     Route: 048
     Dates: start: 20150805, end: 20160125

REACTIONS (9)
  - Hemiparesis [None]
  - Paraesthesia [None]
  - Neutropenia [None]
  - Salmonella test positive [None]
  - Blood creatinine increased [None]
  - Blood culture positive [None]
  - Therapy cessation [None]
  - Klebsiella test positive [None]
  - Infection [None]

NARRATIVE: CASE EVENT DATE: 20160202
